FAERS Safety Report 21675834 (Version 2)
Quarter: 2022Q4

REPORT INFORMATION
  Report Type: Report from Study
  Country: CL (occurrence: CL)
  Receive Date: 20221202
  Receipt Date: 20221216
  Transmission Date: 20230113
  Serious: Yes (Other)
  Sender: FDA-Public Use
  Company Number: CL-002147023-NVSC2022CL280475

PATIENT
  Age: 65 Year
  Sex: Female

DRUGS (3)
  1. SANDOSTATIN LAR DEPOT [Suspect]
     Active Substance: OCTREOTIDE ACETATE
     Indication: Acromegaly
     Dosage: 20 MG, QMO
     Route: 030
     Dates: start: 2016
  2. SANDOSTATIN LAR DEPOT [Suspect]
     Active Substance: OCTREOTIDE ACETATE
  3. SANDOSTATIN LAR DEPOT [Suspect]
     Active Substance: OCTREOTIDE ACETATE

REACTIONS (3)
  - Cataract [Unknown]
  - Myopia [Unknown]
  - Neoplasm [Unknown]

NARRATIVE: CASE EVENT DATE: 20221101
